FAERS Safety Report 19769325 (Version 1)
Quarter: 2021Q3

REPORT INFORMATION
  Report Type: Spontaneous
  Country: US (occurrence: US)
  Receive Date: 20210831
  Receipt Date: 20210831
  Transmission Date: 20211014
  Serious: Yes (Life-Threatening)
  Sender: FDA-Public Use
  Company Number: None

PATIENT
  Age: 68 Year
  Sex: Female
  Weight: 78.8 kg

DRUGS (1)
  1. BARICITINIB. [Suspect]
     Active Substance: BARICITINIB
     Indication: COVID-19
     Route: 048
     Dates: start: 20210828, end: 20210829

REACTIONS (2)
  - Blood creatinine increased [None]
  - Oxygen saturation decreased [None]

NARRATIVE: CASE EVENT DATE: 20210830
